FAERS Safety Report 7279347-X (Version None)
Quarter: 2011Q1

REPORT INFORMATION
  Report Type: 
  Country: None (occurrence: None)
  Receive Date: 20110207
  Receipt Date: 20110131
  Transmission Date: 20110831
  Serious: Yes (Hospitalization, Other)
  Sender: FDA-Public Use
  Company Number: US-RB-020262-11

PATIENT
  Age: 35 Year
  Sex: Female

DRUGS (2)
  1. SUBOXONE [Suspect]
     Indication: DRUG DEPENDENCE
     Dosage: SELF TAPERED DOSE FROM 24 MG
     Route: 065
     Dates: start: 20080101, end: 20100401
  2. SUBOXONE [Suspect]
     Route: 060
     Dates: start: 20100401, end: 20100801

REACTIONS (6)
  - ROAD TRAFFIC ACCIDENT [None]
  - INTENTIONAL DRUG MISUSE [None]
  - ABDOMINAL PAIN UPPER [None]
  - APPENDICITIS [None]
  - CHOLELITHIASIS [None]
  - SUBSTANCE ABUSE [None]
